FAERS Safety Report 11051729 (Version 1)
Quarter: 2015Q2

REPORT INFORMATION
  Report Type: Report from Study
  Country: US (occurrence: US)
  Receive Date: 20150421
  Receipt Date: 20150421
  Transmission Date: 20150821
  Serious: Yes (Hospitalization)
  Sender: FDA-Public Use
  Company Number: US-SA-2014SA142616

PATIENT
  Age: 33 Year
  Sex: Female

DRUGS (1)
  1. AUBAGIO [Suspect]
     Active Substance: TERIFLUNOMIDE
     Indication: MULTIPLE SCLEROSIS
     Route: 048
     Dates: start: 20130101, end: 20140701

REACTIONS (14)
  - Gastric disorder [Unknown]
  - Burning sensation [Unknown]
  - Anxiety [Unknown]
  - Memory impairment [Unknown]
  - Fatigue [Unknown]
  - Pain [Unknown]
  - Grip strength decreased [Unknown]
  - Diarrhoea [Unknown]
  - Dizziness [Unknown]
  - Restless legs syndrome [Unknown]
  - Vomiting [Unknown]
  - Sensory disturbance [Unknown]
  - Frustration [Unknown]
  - Drug dose omission [Unknown]
